FAERS Safety Report 9904790 (Version 2)
Quarter: 2014Q2

REPORT INFORMATION
  Report Type: Report from Study
  Country: JP (occurrence: JP)
  Receive Date: 20140218
  Receipt Date: 20140617
  Transmission Date: 20141212
  Serious: Yes (Hospitalization)
  Sender: FDA-Public Use
  Company Number: JP-B.I. PHARMACEUTICALS,INC./RIDGEFIELD-2014-BI-06423NB

PATIENT
  Age: 65 Year
  Sex: Male
  Weight: 72.5 kg

DRUGS (2)
  1. PRAZAXA [Suspect]
     Indication: CEREBROVASCULAR ACCIDENT PROPHYLAXIS
     Dosage: 300 MG
     Route: 048
     Dates: start: 20120905, end: 20130911
  2. BLOPRESS [Concomitant]
     Dosage: 8 MG
     Route: 048
     Dates: start: 20120918, end: 20130911

REACTIONS (1)
  - Arrhythmia [Unknown]
